FAERS Safety Report 4939764-7 (Version None)
Quarter: 2006Q1

REPORT INFORMATION
  Report Type: 
  Country: None (occurrence: None)
  Receive Date: 20060307
  Receipt Date: 20060221
  Transmission Date: 20060701
  Serious: Yes (Other)
  Sender: FDA-Public Use
  Company Number: RENA-11666

PATIENT
  Age: 5 Year
  Sex: Male

DRUGS (7)
  1. RENAGEL [Suspect]
     Indication: HYPERPHOSPHATAEMIA
     Dosage: 0.8 G TID PO
     Route: 048
     Dates: start: 20051219
  2. VIGANTOLETTEN [Concomitant]
  3. ROCALTROL [Concomitant]
  4. FERROSANOL DUODENAL (IRON) [Concomitant]
  5. MUTAFLOR [Concomitant]
  6. GROWTH HORMONE [Concomitant]
  7. MINIPRESS [Concomitant]

REACTIONS (2)
  - CONSTIPATION [None]
  - DRUG INEFFECTIVE [None]
